FAERS Safety Report 5040223-4 (Version None)
Quarter: 2006Q2

REPORT INFORMATION
  Report Type: 
  Country: None (occurrence: None)
  Receive Date: 20060630
  Receipt Date: 20060621
  Transmission Date: 20061013
  Serious: Yes (Death, Life-Threatening)
  Sender: FDA-Public Use
  Company Number: FR-JNJFOC-20050100961

PATIENT
  Age: 50 Year
  Sex: Male

DRUGS (3)
  1. REMICADE [Suspect]
     Dosage: 5 INFUSIONS IN TOTAL
     Route: 042
  2. REMICADE [Suspect]
     Indication: SWEAT GLAND INFECTION
     Dosage: 5 INFUSIONS ADMINISTERED.
     Route: 042
  3. COTRIMOXAZOLE [Concomitant]

REACTIONS (1)
  - SQUAMOUS CELL CARCINOMA [None]
